FAERS Safety Report 9687220 (Version 1)
Quarter: 2013Q4

REPORT INFORMATION
  Report Type: Spontaneous
  Country: US (occurrence: US)
  Receive Date: 20131113
  Receipt Date: 20131113
  Transmission Date: 20140711
  Serious: No
  Sender: FDA-Public Use
  Company Number: US-009507513-1311USA003680

PATIENT
  Age: 65 Year
  Sex: Female

DRUGS (5)
  1. SAPHRIS [Suspect]
     Indication: BIPOLAR I DISORDER
     Dosage: A QUARTER OF A TABLET OF THE 10MG PER DAY
     Route: 060
     Dates: start: 20130715
  2. EFFEXOR [Concomitant]
  3. GABAPENTIN [Concomitant]
  4. TRAZODONE HYDROCHLORIDE [Concomitant]
  5. XANAX [Concomitant]

REACTIONS (3)
  - Restless legs syndrome [Not Recovered/Not Resolved]
  - Underdose [Unknown]
  - Wrong technique in drug usage process [Unknown]
